FAERS Safety Report 4303707-X (Version None)
Quarter: 2004Q1

REPORT INFORMATION
  Report Type: 
  Country: None (occurrence: None)
  Receive Date: 20040220
  Receipt Date: 20030807
  Transmission Date: 20041129
  Serious: Yes (Other)
  Sender: FDA-Public Use
  Company Number: A03200301786

PATIENT
  Age: 19 Year
  Sex: Male

DRUGS (7)
  1. PRIMACOR [Suspect]
     Indication: CARDIOMYOPATHY
     Dosage: 1.9 MG/ML QD
     Route: 042
     Dates: start: 20030722, end: 20030801
  2. DOPAMINE HCL [Concomitant]
  3. DIGOXIN [Concomitant]
  4. WARFARIN SODIUM [Concomitant]
  5. FUROSEMIDE [Concomitant]
  6. BUMETANIDE [Concomitant]
  7. ALBUTEROL [Concomitant]

REACTIONS (2)
  - ACCIDENTAL OVERDOSE [None]
  - VENTRICULAR TACHYCARDIA [None]
